FAERS Safety Report 23358673 (Version 1)
Quarter: 2024Q1

REPORT INFORMATION
  Report Type: Spontaneous
  Country: CN (occurrence: CN)
  Receive Date: 20240102
  Receipt Date: 20240102
  Transmission Date: 20240409
  Serious: Yes (Hospitalization)
  Sender: FDA-Public Use
  Company Number: CN-PFIZER INC-PV202300205771

PATIENT
  Age: 6 Year
  Sex: Male
  Weight: 20.5 kg

DRUGS (2)
  1. EPIRUBICIN HYDROCHLORIDE [Suspect]
     Active Substance: EPIRUBICIN HYDROCHLORIDE
     Indication: Burkitt^s lymphoma
     Dosage: 24 MG, 1X/DAY
     Dates: start: 20231206, end: 20231207
  2. CYCLOPHOSPHAMIDE [Suspect]
     Active Substance: CYCLOPHOSPHAMIDE
     Indication: Burkitt^s lymphoma
     Dosage: 400 MG, 1X/DAY
     Dates: start: 20231206, end: 20231207

REACTIONS (7)
  - Myelosuppression [Recovering/Resolving]
  - Amylase increased [Recovering/Resolving]
  - Pyrexia [Recovering/Resolving]
  - Vomiting [Recovering/Resolving]
  - Red blood cell count decreased [Recovering/Resolving]
  - Pancreatitis [Recovering/Resolving]
  - Abdominal discomfort [Recovering/Resolving]

NARRATIVE: CASE EVENT DATE: 20231209
